FAERS Safety Report 23469058 (Version 2)
Quarter: 2024Q3

REPORT INFORMATION
  Report Type: Spontaneous
  Country: US (occurrence: US)
  Receive Date: 20240202
  Receipt Date: 20240909
  Transmission Date: 20241017
  Serious: No
  Sender: EMD SERONO INC
  Company Number: US-Merck Healthcare KGaA-2024005536

PATIENT
  Sex: Male

DRUGS (1)
  1. REBIF [Suspect]
     Active Substance: INTERFERON BETA-1A
     Indication: Multiple sclerosis

REACTIONS (3)
  - Meniscus injury [Recovered/Resolved]
  - Memory impairment [Unknown]
  - Ill-defined disorder [Recovered/Resolved]
